FAERS Safety Report 4512069-4 (Version None)
Quarter: 2004Q4

REPORT INFORMATION
  Report Type: 
  Country: None (occurrence: None)
  Receive Date: 20041129
  Receipt Date: 20040323
  Transmission Date: 20050328
  Serious: Yes (Life-Threatening, Hospitalization)
  Sender: FDA-Public Use
  Company Number: ES-ROCHE-362497

PATIENT
  Age: 59 Year
  Sex: Female
  Weight: 54 kg

DRUGS (11)
  1. MYCOPHENOLATE MOFETIL [Suspect]
     Route: 048
     Dates: start: 20040301
  2. CYCLOSPORINE [Suspect]
     Route: 048
     Dates: start: 20040301
  3. CYCLOSPORINE [Suspect]
     Route: 048
  4. PREDNISONE [Suspect]
     Route: 048
     Dates: start: 20040301
  5. PREDNISONE [Suspect]
     Route: 048
  6. ISONIAZID [Concomitant]
     Route: 048
     Dates: start: 20040302, end: 20041019
  7. TRIMETHOPRIM-SULFAMETHOXAZOLE [Concomitant]
     Route: 048
     Dates: start: 20040302, end: 20041019
  8. VALGANCICLOVIR [Concomitant]
     Route: 048
     Dates: start: 20040302
  9. RANITIDINE [Concomitant]
     Route: 048
     Dates: start: 20040302
  10. ACETYLSALICYLIC ACID [Concomitant]
     Route: 048
     Dates: start: 20040302
  11. PERINDOPRIL [Concomitant]
     Route: 048
     Dates: start: 20040305, end: 20040316

REACTIONS (6)
  - BLOOD CREATININE INCREASED [None]
  - CHEST PAIN [None]
  - COMPLICATIONS OF TRANSPLANTED KIDNEY [None]
  - CYTOMEGALOVIRUS INFECTION [None]
  - DRUG INEFFECTIVE [None]
  - KIDNEY TRANSPLANT REJECTION [None]
